FAERS Safety Report 4830100-3 (Version None)
Quarter: 2005Q4

REPORT INFORMATION
  Report Type: 
  Country: None (occurrence: None)
  Receive Date: 20051117
  Receipt Date: 20051108
  Transmission Date: 20060501
  Serious: Yes (Hospitalization)
  Sender: FDA-Public Use
  Company Number: 2005AP05866

PATIENT
  Age: 56 Year
  Sex: Female

DRUGS (4)
  1. TENORMIN [Suspect]
     Indication: SUPRAVENTRICULAR EXTRASYSTOLES
     Route: 048
  2. UNKNOWN DRUG [Concomitant]
     Indication: DIABETES MELLITUS
  3. GLUCOBAY [Concomitant]
     Indication: DIABETES MELLITUS
     Route: 048
  4. UNKNOWN DRUG [Concomitant]

REACTIONS (1)
  - VENTRICULAR FIBRILLATION [None]
